FAERS Safety Report 16998770 (Version 1)
Quarter: 2019Q4

REPORT INFORMATION
  Report Type: Spontaneous
  Country: US (occurrence: US)
  Receive Date: 20190925
  Receipt Date: 20190925
  Transmission Date: 20200122
  Serious: Yes (Hospitalization)
  Sender: FDA-Public Use
  Company Number: None

PATIENT
  Age: 59 Year
  Sex: Male

DRUGS (2)
  1. MYCOPHENOLATE - 500 MG TABLET [Suspect]
     Active Substance: MYCOPHENOLIC ACID
     Indication: PRODUCT USED FOR UNKNOWN INDICATION
     Dosage: ?          OTHER DOSE:2 TABLETS (1000MG);?
     Route: 048
     Dates: start: 20190706
  2. TACROLIMUS - 1 MG CAPSULE [Suspect]
     Active Substance: TACROLIMUS
     Indication: PRODUCT USED FOR UNKNOWN INDICATION
     Dosage: ?          OTHER DOSE:3 CAPSULES (3 MG);?
     Route: 048
     Dates: start: 20190719

REACTIONS (2)
  - Dehydration [None]
  - Gastroenteritis viral [None]

NARRATIVE: CASE EVENT DATE: 20190901
